FAERS Safety Report 12388059 (Version 1)
Quarter: 2016Q2

REPORT INFORMATION
  Report Type: Spontaneous
  Country: US (occurrence: None)
  Receive Date: 20160519
  Receipt Date: 20160519
  Transmission Date: 20160815
  Serious: Yes (Life-Threatening, Hospitalization, Other)
  Sender: FDA-Public Use
  Company Number: None

PATIENT
  Age: 63 Year
  Sex: Female
  Weight: 70.31 kg

DRUGS (9)
  1. MULTIVITAMINS [Concomitant]
     Active Substance: VITAMINS
  2. MELATONIN [Concomitant]
     Active Substance: MELATONIN
  3. ALEVE [Concomitant]
     Active Substance: NAPROXEN SODIUM
  4. VAGIFEM [Suspect]
     Active Substance: ESTRADIOL
     Indication: VULVOVAGINAL DRYNESS
     Route: 067
     Dates: start: 20120701, end: 20160311
  5. VITAMIN D3 [Concomitant]
     Active Substance: CHOLECALCIFEROL
  6. GLUCOSAMINE [Concomitant]
     Active Substance: GLUCOSAMINE
  7. VAGIFEM [Suspect]
     Active Substance: ESTRADIOL
     Indication: UROGENITAL DISORDER
     Route: 067
     Dates: start: 20120701, end: 20160311
  8. LEVOTHYROXINE. [Concomitant]
     Active Substance: LEVOTHYROXINE
  9. TART CHERRY [Concomitant]

REACTIONS (2)
  - Vaginal haemorrhage [None]
  - Endometrial cancer [None]

NARRATIVE: CASE EVENT DATE: 20160407
